FAERS Safety Report 20680957 (Version 1)
Quarter: 2022Q2

REPORT INFORMATION
  Report Type: Spontaneous
  Country: US (occurrence: US)
  Receive Date: 20220406
  Receipt Date: 20220406
  Transmission Date: 20220721
  Serious: No
  Sender: FDA-Public Use
  Company Number: US-PFIZER INC-2021881495

PATIENT
  Age: 48 Year
  Sex: Female

DRUGS (2)
  1. IBRANCE [Suspect]
     Active Substance: PALBOCICLIB
     Indication: Breast cancer female
     Dosage: 125 MG
     Dates: start: 20210614
  2. IBRANCE [Suspect]
     Active Substance: PALBOCICLIB
     Indication: Breast cancer female
     Dosage: 125 MG, CYCLIC (TAKE 1 TAB PO FOR 21 DAYS, THEN 7 DAYS OFF)
     Route: 048
     Dates: start: 20210617

REACTIONS (4)
  - Product dose omission issue [Unknown]
  - Hot flush [Unknown]
  - Fatigue [Unknown]
  - Skin lesion [Unknown]

NARRATIVE: CASE EVENT DATE: 20210101
